FAERS Safety Report 25982351 (Version 1)
Quarter: 2025Q4

REPORT INFORMATION
  Report Type: Spontaneous
  Country: US (occurrence: US)
  Receive Date: 20251031
  Receipt Date: 20251031
  Transmission Date: 20260117
  Serious: No
  Sender: RANBAXY
  Company Number: US-SUN PHARMACEUTICAL INDUSTRIES LTD-2025R1-518328

PATIENT
  Age: 83 Year
  Sex: Male
  Weight: 85.714 kg

DRUGS (4)
  1. TRETINOIN [Suspect]
     Active Substance: TRETINOIN
     Indication: Actinic keratosis
     Dosage: UNK
     Route: 061
     Dates: start: 202505
  2. Omnaprozole [Concomitant]
     Indication: Product used for unknown indication
     Route: 065
  3. Tamsilosin [Concomitant]
     Indication: Product used for unknown indication
     Route: 065
  4. Levothiroxine [Concomitant]
     Indication: Product used for unknown indication
     Route: 065

REACTIONS (1)
  - Malaise [Unknown]

NARRATIVE: CASE EVENT DATE: 20250708
